FAERS Safety Report 23842907 (Version 1)
Quarter: 2024Q2

REPORT INFORMATION
  Report Type: Spontaneous
  Country: CO (occurrence: CO)
  Receive Date: 20240510
  Receipt Date: 20240510
  Transmission Date: 20240716
  Serious: Yes (Other)
  Sender: FDA-Public Use
  Company Number: CO-SANDOZ-SDZ2024CO047314

PATIENT
  Sex: Female

DRUGS (2)
  1. MONTELUKAST [Suspect]
     Active Substance: MONTELUKAST SODIUM
     Indication: Product used for unknown indication
     Dosage: SHE TAKES ONE DOSE IN THE MORNING AND ANOTHER AT NIGHT
     Route: 048
  2. XOLAIR [Suspect]
     Active Substance: OMALIZUMAB
     Indication: Asthma
     Dosage: 300 MG MONTHLY
     Route: 058
     Dates: start: 20180521

REACTIONS (5)
  - Asphyxia [Unknown]
  - Weight decreased [Unknown]
  - Asthma [Unknown]
  - Cough [Unknown]
  - Hypersensitivity [Unknown]
